FAERS Safety Report 18772846 (Version 2)
Quarter: 2021Q1

REPORT INFORMATION
  Report Type: Spontaneous
  Country: SE (occurrence: SE)
  Receive Date: 20210122
  Receipt Date: 20210128
  Transmission Date: 20210419
  Serious: Yes (Other)
  Sender: FDA-Public Use
  Company Number: IE-SA-2020SA348983

PATIENT

DRUGS (2)
  1. ELOCTA [Suspect]
     Active Substance: EFMOROCTOCOG ALFA
     Indication: HAEMORRHAGE PROPHYLAXIS
     Dosage: UNK
  2. ELOCTA [Suspect]
     Active Substance: EFMOROCTOCOG ALFA
     Indication: HAEMORRHAGE PROPHYLAXIS
     Dosage: UNK

REACTIONS (1)
  - Haemorrhage [Unknown]
